FAERS Safety Report 17554081 (Version 2)
Quarter: 2020Q2

REPORT INFORMATION
  Report Type: Report from Study
  Country: AR (occurrence: AR)
  Receive Date: 20200317
  Receipt Date: 20200504
  Transmission Date: 20200713
  Serious: Yes (Other)
  Sender: FDA-Public Use
  Company Number: AR-BRISTOL-MYERS SQUIBB COMPANY-BMS-2020-023239

PATIENT
  Age: 73 Year
  Sex: Male

DRUGS (1)
  1. APIXABAN [Suspect]
     Active Substance: APIXABAN
     Indication: CEREBROVASCULAR ACCIDENT PROPHYLAXIS
     Dosage: 5 MILLIGRAM, BID
     Route: 065
     Dates: start: 20170719

REACTIONS (2)
  - Lymphoma [Recovering/Resolving]
  - Cardiac disorder [Unknown]

NARRATIVE: CASE EVENT DATE: 20191001
